FAERS Safety Report 11919671 (Version 5)
Quarter: 2016Q2

REPORT INFORMATION
  Report Type: Spontaneous
  Country: US (occurrence: US)
  Receive Date: 20160115
  Receipt Date: 20160614
  Transmission Date: 20160815
  Serious: No
  Sender: FDA-Public Use
  Company Number: US-PFIZER INC-2015467582

PATIENT
  Age: 51 Year
  Sex: Female

DRUGS (3)
  1. XELJANZ [Suspect]
     Active Substance: TOFACITINIB CITRATE
     Indication: RHEUMATOID ARTHRITIS
     Dosage: 5 MG, 2X/DAY
     Dates: start: 201511
  2. XELJANZ [Suspect]
     Active Substance: TOFACITINIB CITRATE
     Indication: INFLAMMATION
     Dosage: 5 MG, 2X/DAY
     Dates: start: 201511
  3. XELJANZ [Suspect]
     Active Substance: TOFACITINIB CITRATE
     Indication: LYME DISEASE

REACTIONS (9)
  - Weight increased [Unknown]
  - Fungal infection [Unknown]
  - Abdominal pain [Unknown]
  - Fatigue [Unknown]
  - Acne [Unknown]
  - Diarrhoea [Unknown]
  - Spinal pain [Not Recovered/Not Resolved]
  - Menorrhagia [Unknown]
  - Product use issue [Not Recovered/Not Resolved]

NARRATIVE: CASE EVENT DATE: 201511
